FAERS Safety Report 26018523 (Version 1)
Quarter: 2025Q4

REPORT INFORMATION
  Report Type: Spontaneous
  Country: SA (occurrence: SA)
  Receive Date: 20251110
  Receipt Date: 20251110
  Transmission Date: 20260117
  Serious: Yes (Hospitalization, Other)
  Sender: LAURUS LABS LIMITED
  Company Number: SA-LAURUS LABS LIMITED-2025LAU000051

PATIENT
  Sex: Male

DRUGS (1)
  1. METFORMIN [Suspect]
     Active Substance: METFORMIN HYDROCHLORIDE
     Indication: Type 2 diabetes mellitus
     Dosage: 500 MILLIGRAM, EVERY 12 HOUR
     Route: 065

REACTIONS (1)
  - Haemolytic anaemia [Recovering/Resolving]
